FAERS Safety Report 5947892-2 (Version None)
Quarter: 2008Q4

REPORT INFORMATION
  Report Type: 
  Country: None (occurrence: None)
  Receive Date: 20081111
  Receipt Date: 20080722
  Transmission Date: 20090506
  Serious: No
  Sender: FDA-Public Use
  Company Number: A0739961A

PATIENT
  Sex: Male

DRUGS (2)
  1. TREXIMET [Suspect]
     Indication: HEADACHE
     Route: 048
  2. UNKNOWN DRUG [Concomitant]
     Indication: HEADACHE

REACTIONS (1)
  - DRUG INEFFECTIVE [None]
